FAERS Safety Report 24217752 (Version 1)
Quarter: 2024Q3

REPORT INFORMATION
  Report Type: Spontaneous
  Country: CN (occurrence: CN)
  Receive Date: 20240816
  Receipt Date: 20240816
  Transmission Date: 20241016
  Serious: Yes (Life-Threatening, Hospitalization)
  Sender: BAYER
  Company Number: CN-BAYER-2024A118173

PATIENT
  Sex: Female
  Weight: 52.5 kg

DRUGS (1)
  1. YASMIN [Suspect]
     Active Substance: DROSPIRENONE\ETHINYL ESTRADIOL
     Indication: Polycystic ovarian syndrome
     Dosage: UNK
     Route: 048
     Dates: start: 2024

REACTIONS (4)
  - Pancreatitis acute [None]
  - Abdominal pain upper [None]
  - Hyperlipidaemia [None]
  - Product use in unapproved indication [None]

NARRATIVE: CASE EVENT DATE: 20240101
